FAERS Safety Report 20334914 (Version 2)
Quarter: 2022Q3

REPORT INFORMATION
  Report Type: Spontaneous
  Country: ES (occurrence: ES)
  Receive Date: 20220114
  Receipt Date: 20220707
  Transmission Date: 20221026
  Serious: Yes (Other)
  Sender: FDA-Public Use
  Company Number: ES-NOVARTISPH-NVSC2021ES297622

PATIENT
  Age: 56 Year
  Sex: Male

DRUGS (3)
  1. EVEROLIMUS [Suspect]
     Active Substance: EVEROLIMUS
     Indication: Neuroendocrine tumour
     Dosage: 10 MILLIGRAM DAILY;
     Route: 048
     Dates: start: 201907, end: 202002
  2. EVEROLIMUS [Suspect]
     Active Substance: EVEROLIMUS
     Dosage: 5 MG, Q24H
     Route: 048
     Dates: start: 2020, end: 202006
  3. GEMCITABINE [Concomitant]
     Active Substance: GEMCITABINE
     Indication: Neuroendocrine tumour
     Dosage: 1000 MG/M2, Q2W
     Route: 042
     Dates: start: 201504

REACTIONS (1)
  - Complex regional pain syndrome [Recovered/Resolved]

NARRATIVE: CASE EVENT DATE: 20200601
